FAERS Safety Report 6284398-8 (Version None)
Quarter: 2009Q3

REPORT INFORMATION
  Report Type: 
  Country: None (occurrence: None)
  Receive Date: 20090727
  Receipt Date: 20090714
  Transmission Date: 20100115
  Serious: Yes (Death, Hospitalization)
  Sender: FDA-Public Use
  Company Number: JP-ROCHE-594381

PATIENT
  Sex: Male
  Weight: 60 kg

DRUGS (6)
  1. PEGASYS [Suspect]
     Indication: HEPATITIS C
     Route: 058
     Dates: start: 20080716, end: 20081015
  2. COPEGUS [Suspect]
     Indication: HEPATITIS C
     Route: 048
     Dates: start: 20080716, end: 20081015
  3. URSO 250 [Concomitant]
     Route: 048
     Dates: end: 20081017
  4. GLYCYRON [Concomitant]
     Route: 048
     Dates: end: 20081017
  5. MICARDIS [Concomitant]
     Route: 048
     Dates: end: 20081017
  6. INDAPAMIDE [Concomitant]
     Dosage: TRADE NAME REPORTED: NATRIX
     Route: 048
     Dates: end: 20080908

REACTIONS (1)
  - LYMPHOMA [None]
